FAERS Safety Report 6345793-1 (Version None)
Quarter: 2009Q3

REPORT INFORMATION
  Report Type: 
  Country: None (occurrence: None)
  Receive Date: 20090909
  Receipt Date: 20090827
  Transmission Date: 20100115
  Serious: Yes (Life-Threatening, Hospitalization)
  Sender: FDA-Public Use
  Company Number: US-JNJCH-2009023932

PATIENT
  Sex: Male
  Weight: 130.2 kg

DRUGS (9)
  1. ASPIRIN [Suspect]
     Indication: ACUTE CORONARY SYNDROME
     Dosage: TEXT:81 MG
     Route: 048
  2. PLACEBO [Suspect]
     Indication: ACUTE CORONARY SYNDROME
     Dosage: TEXT:1 IN 1 DAY
     Route: 048
     Dates: start: 20090730, end: 20090730
  3. PLACEBO [Suspect]
     Dosage: TEXT:2 IN 1 DAY
     Route: 048
     Dates: start: 20090731, end: 20090731
  4. ANTICOAGULANTS [Suspect]
     Indication: ACUTE CORONARY SYNDROME
     Dosage: TEXT:1 IN 1 DAY (2.5 MG OR 5 MG)
     Route: 048
     Dates: start: 20090730, end: 20090730
  5. ANTICOAGULANTS [Suspect]
     Dosage: TEXT:2 IN 1 MONTH
     Route: 048
  6. CLOPIDOGREL [Concomitant]
     Indication: ACUTE CORONARY SYNDROME
     Dosage: TEXT:75 MG
     Route: 065
  7. METFORMIN HCL [Concomitant]
     Indication: DRUG USE FOR UNKNOWN INDICATION
     Dosage: TEXT:UNKNOWN
     Route: 065
  8. LEVOTHYROXINE SODIUM [Concomitant]
     Indication: DRUG USE FOR UNKNOWN INDICATION
     Dosage: TEXT:UNKNOWN
     Route: 065
  9. METOPROLOL TARTRATE [Concomitant]
     Indication: DRUG USE FOR UNKNOWN INDICATION
     Dosage: TEXT:UNKNOWN
     Route: 065

REACTIONS (1)
  - UPPER GASTROINTESTINAL HAEMORRHAGE [None]
